FAERS Safety Report 9903213 (Version 2)
Quarter: 2014Q3

REPORT INFORMATION
  Report Type: Spontaneous
  Country: US (occurrence: US)
  Receive Date: 20140217
  Receipt Date: 20140801
  Transmission Date: 20150326
  Serious: Yes (Hospitalization, Other)
  Sender: FDA-Public Use
  Company Number: US-009507513-1402USA007231

PATIENT
  Sex: Female
  Weight: 104.31 kg

DRUGS (1)
  1. NUVARING [Suspect]
     Active Substance: ETHINYL ESTRADIOL\ETONOGESTREL
     Indication: CONTRACEPTION
     Dosage: UNK
     Route: 067
     Dates: start: 20130802, end: 20131015

REACTIONS (13)
  - Tricuspid valve incompetence [Unknown]
  - Anaemia [Unknown]
  - Deep vein thrombosis [Unknown]
  - Patella fracture [Unknown]
  - Hypokalaemia [Recovered/Resolved]
  - Pulmonary embolism [Unknown]
  - Fibula fracture [Unknown]
  - Syncope [Unknown]
  - Ligament rupture [Unknown]
  - Tibia fracture [Unknown]
  - Meniscus injury [Unknown]
  - Road traffic accident [Unknown]
  - Blood bicarbonate decreased [Not Recovered/Not Resolved]

NARRATIVE: CASE EVENT DATE: 201309
